FAERS Safety Report 5671128-3 (Version None)
Quarter: 2008Q1

REPORT INFORMATION
  Report Type: 
  Country: None (occurrence: None)
  Receive Date: 20080318
  Receipt Date: 20080317
  Transmission Date: 20080703
  Serious: Yes (Death)
  Sender: FDA-Public Use
  Company Number: AU-ALLERGAN-0802644US

PATIENT
  Sex: Female

DRUGS (7)
  1. BRIMONIDINE 0.15% SOL W/ PURITE [Suspect]
     Indication: GLAUCOMA
     Dosage: 1 GTT, BID
     Route: 047
     Dates: start: 20051128
  2. LUMIGAN [Concomitant]
     Indication: GLAUCOMA
     Dosage: UNK, QPM
     Route: 047
  3. PILOCARPINE [Concomitant]
     Indication: GLAUCOMA
     Dosage: UNK, BID
     Route: 047
  4. LANOXIN [Concomitant]
  5. SLOW-K [Concomitant]
  6. UREMIDE [Concomitant]
  7. TRUSOPT [Concomitant]
     Indication: GLAUCOMA
     Dosage: UNK, BID
     Route: 047

REACTIONS (1)
  - DEATH [None]
